FAERS Safety Report 16859799 (Version 1)
Quarter: 2019Q3

REPORT INFORMATION
  Report Type: Spontaneous
  Country: FR (occurrence: FR)
  Receive Date: 20190927
  Receipt Date: 20190927
  Transmission Date: 20191005
  Serious: Yes (Other)
  Sender: FDA-Public Use
  Company Number: FR-ASTELLAS-2019US037874

PATIENT
  Age: 76 Year
  Sex: Female

DRUGS (2)
  1. BETMIGA [Suspect]
     Active Substance: MIRABEGRON
     Indication: HYPERTONIC BLADDER
     Dosage: 50 MG, ONCE DAILY (1 DF, ONCE DAILY IN MORNING)
     Route: 048
     Dates: start: 2019
  2. AUGMENTIN [Interacting]
     Active Substance: AMOXICILLIN\CLAVULANATE POTASSIUM
     Indication: CYSTITIS
     Route: 048
     Dates: start: 20190917

REACTIONS (3)
  - Therapeutic product effect decreased [Unknown]
  - Cystitis escherichia [Unknown]
  - Drug interaction [Unknown]

NARRATIVE: CASE EVENT DATE: 201909
